FAERS Safety Report 9870716 (Version 2)
Quarter: 2014Q1

REPORT INFORMATION
  Report Type: Spontaneous
  Country: DE (occurrence: DE)
  Receive Date: 20140205
  Receipt Date: 20140205
  Transmission Date: 20141002
  Serious: Yes (Other)
  Sender: FDA-Public Use
  Company Number: DE-THROMBOGENICS INC-JET-2013-337

PATIENT
  Age: 65 Year
  Sex: Female

DRUGS (1)
  1. JETREA [Suspect]
     Indication: PRODUCT USED FOR UNKNOWN INDICATION
     Dosage: 0.125 MG, ONE TIME DOSE
     Route: 031
     Dates: start: 20131126, end: 20131126

REACTIONS (9)
  - Night blindness [Unknown]
  - Visual acuity reduced [Unknown]
  - Retinal oedema [Recovered/Resolved]
  - Photopsia [Recovered/Resolved]
  - Visual impairment [Recovered/Resolved]
  - Vitreous floaters [Recovered/Resolved]
  - Metamorphopsia [Recovered/Resolved]
  - Visual field defect [Recovered/Resolved]
  - Visual impairment [Unknown]
